FAERS Safety Report 17389445 (Version 1)
Quarter: 2020Q1

REPORT INFORMATION
  Report Type: Spontaneous
  Country: US (occurrence: US)
  Receive Date: 20200123
  Receipt Date: 20200123
  Transmission Date: 20200409
  Serious: Yes (Hospitalization)
  Sender: FDA-Public Use
  Company Number: None

PATIENT
  Age: 80 Year
  Sex: Male

DRUGS (10)
  1. ATORVASTATIN TAB [Concomitant]
     Active Substance: ATORVASTATIN
  2. OMEPRAZOLE CAP [Concomitant]
     Active Substance: OMEPRAZOLE SODIUM
  3. ASPIRIN TAB [Concomitant]
  4. ESBRIET [Suspect]
     Active Substance: PIRFENIDONE
     Indication: IDIOPATHIC PULMONARY FIBROSIS
     Route: 048
     Dates: start: 20190731
  5. TAMSULOSIN CAP [Concomitant]
     Active Substance: TAMSULOSIN
  6. ALBUTEROL NEB [Concomitant]
     Active Substance: ALBUTEROL
  7. VENTOLIN HFA AER [Concomitant]
  8. ATENOLOL TAB [Concomitant]
     Active Substance: ATENOLOL
  9. IDIOPATHIC CAP [Concomitant]
  10. ALLOPURINOL TAB [Concomitant]
     Active Substance: ALLOPURINOL

REACTIONS (1)
  - Lung disorder [None]

NARRATIVE: CASE EVENT DATE: 20200116
